FAERS Safety Report 11133503 (Version 4)
Quarter: 2015Q3

REPORT INFORMATION
  Report Type: Report from Study
  Country: PL (occurrence: PL)
  Receive Date: 20150522
  Receipt Date: 20150902
  Transmission Date: 20151125
  Serious: Yes (Death, Other)
  Sender: FDA-Public Use
  Company Number: PHHY2015PL047125

PATIENT
  Age: 15 Year
  Sex: Female

DRUGS (10)
  1. EXJADE [Suspect]
     Active Substance: DEFERASIROX
     Indication: ACUTE MYELOID LEUKAEMIA
     Dosage: 1250 MG, QD
     Route: 065
     Dates: start: 20150124, end: 20150331
  2. CYTOSAR [Concomitant]
     Active Substance: CYTARABINE
     Indication: PRODUCT USED FOR UNKNOWN INDICATION
     Dosage: 65MG AND 60MG ALTERNATELY, QD
     Route: 042
  3. LANVIS [Concomitant]
     Active Substance: THIOGUANINE ANHYDROUS
     Indication: PRODUCT USED FOR UNKNOWN INDICATION
     Dosage: 60 MG
     Route: 065
  4. EXJADE [Suspect]
     Active Substance: DEFERASIROX
     Dosage: UNK
     Route: 065
     Dates: start: 20150416, end: 20150416
  5. METRONIDAZOLE. [Concomitant]
     Active Substance: METRONIDAZOLE
     Indication: PRODUCT USED FOR UNKNOWN INDICATION
     Route: 065
  6. DESFERAL [Concomitant]
     Active Substance: DEFEROXAMINE MESYLATE
     Indication: PRODUCT USED FOR UNKNOWN INDICATION
     Dosage: 1500 MG, EVERY 12 HOURS
     Route: 042
     Dates: start: 20150416, end: 20150420
  7. DESFERAL [Concomitant]
     Active Substance: DEFEROXAMINE MESYLATE
     Dosage: 1500 MG, QD
     Route: 042
     Dates: start: 20150501, end: 20150505
  8. FUROSEMIDE. [Concomitant]
     Active Substance: FUROSEMIDE
     Indication: PRODUCT USED FOR UNKNOWN INDICATION
     Route: 065
  9. ACETAMINOPHEN. [Concomitant]
     Active Substance: ACETAMINOPHEN
     Indication: PRODUCT USED FOR UNKNOWN INDICATION
     Route: 065
  10. EXJADE [Suspect]
     Active Substance: DEFERASIROX
     Dosage: 1500 MG, QD
     Route: 065
     Dates: start: 20150401, end: 20150414

REACTIONS (15)
  - Decreased appetite [Unknown]
  - No therapeutic response [Unknown]
  - Off label use [Unknown]
  - Malignant neoplasm progression [Unknown]
  - Mouth haemorrhage [Unknown]
  - Serum ferritin increased [Unknown]
  - Acute myeloid leukaemia [Unknown]
  - Fatigue [Unknown]
  - Oral disorder [Unknown]
  - Epistaxis [Unknown]
  - Transaminases increased [Unknown]
  - Pyrexia [Unknown]
  - Aplasia [Unknown]
  - Death [Fatal]
  - Dysmenorrhoea [Unknown]

NARRATIVE: CASE EVENT DATE: 20150414
